FAERS Safety Report 19957238 (Version 1)
Quarter: 2021Q4

REPORT INFORMATION
  Report Type: Spontaneous
  Country: AU (occurrence: AU)
  Receive Date: 20211015
  Receipt Date: 20211015
  Transmission Date: 20220304
  Serious: Yes (Other)
  Sender: FDA-Public Use
  Company Number: AU-CHIESI-2021CHF04958

PATIENT
  Age: 69 Year
  Sex: Male

DRUGS (2)
  1. FERRIPROX [Suspect]
     Active Substance: DEFERIPRONE
     Indication: Superficial siderosis of central nervous system
     Dosage: 1000 MILLIGRAM, BID
     Dates: start: 20210901
  2. FERRIPROX [Suspect]
     Active Substance: DEFERIPRONE
     Indication: Off label use

REACTIONS (3)
  - Condition aggravated [Unknown]
  - Superficial siderosis of central nervous system [Unknown]
  - Off label use [Not Recovered/Not Resolved]

NARRATIVE: CASE EVENT DATE: 20210901
